FAERS Safety Report 9469818 (Version 1)
Quarter: 2013Q3

REPORT INFORMATION
  Report Type: Spontaneous
  Country: FR (occurrence: FR)
  Receive Date: 20130822
  Receipt Date: 20130822
  Transmission Date: 20140515
  Serious: Yes (Congenital Anomaly)
  Sender: FDA-Public Use
  Company Number: FR-SANOFI-AVENTIS-2013SA082493

PATIENT
  Sex: Male
  Weight: 1.4 kg

DRUGS (7)
  1. CLOMID [Suspect]
     Indication: OVULATION INDUCTION
     Route: 064
     Dates: end: 20090318
  2. HELICIDINE [Suspect]
     Indication: RHINITIS
     Route: 064
     Dates: start: 2009, end: 2009
  3. TIMOPTOL [Concomitant]
     Indication: GLAUCOMA
     Route: 064
  4. CELESTENE [Concomitant]
     Indication: MATERNAL THERAPY TO ENHANCE FOETAL LUNG MATURITY
     Dosage: 26TH WEEK AND 1 DAY OF AMENNORRHEA
     Route: 064
  5. LOXEN [Concomitant]
     Indication: HYPERTENSION
     Dosage: 26TH WEEK AND 1 DAY OF AMENNORRHEA
     Route: 064
  6. RHOPHYLAC [Concomitant]
     Indication: ALLOIMMUNISATION
     Dosage: 26TH WEEK AND 3 DAYS OF AMENNORRHEA
     Route: 064
  7. GYNO-PEVARYL [Concomitant]
     Indication: VULVOVAGINAL MYCOTIC INFECTION
     Dosage: 27TH WEEK OF AMENNORRHEA
     Route: 064

REACTIONS (7)
  - Fallot^s tetralogy [Recovering/Resolving]
  - Ventricular septal defect [Recovering/Resolving]
  - Hypertrophy [Recovering/Resolving]
  - Right ventricle outflow tract obstruction [Recovering/Resolving]
  - Pulmonary hypertension [Recovering/Resolving]
  - Foetal growth restriction [Recovered/Resolved]
  - Hypospadias [Recovering/Resolving]
